FAERS Safety Report 13763581 (Version 2)
Quarter: 2017Q3

REPORT INFORMATION
  Report Type: Spontaneous
  Country: GB (occurrence: GB)
  Receive Date: 20170718
  Receipt Date: 20170725
  Transmission Date: 20171127
  Serious: Yes (Hospitalization)
  Sender: FDA-Public Use
  Company Number: GB-SA-2017SA126926

PATIENT
  Age: 90 Year
  Sex: Female

DRUGS (1)
  1. CEREZYME [Suspect]
     Active Substance: IMIGLUCERASE
     Dosage: DOSE:1200 UNIT(S)
     Route: 041

REACTIONS (4)
  - Lower respiratory tract infection [Unknown]
  - Respiratory disorder [Unknown]
  - Surgery [Unknown]
  - Asthenia [Unknown]

NARRATIVE: CASE EVENT DATE: 2017
